FAERS Safety Report 10069890 (Version 1)
Quarter: 2014Q2

REPORT INFORMATION
  Report Type: Spontaneous
  Country: GR (occurrence: None)
  Receive Date: 20140408
  Receipt Date: 20140408
  Transmission Date: 20141212
  Serious: Yes (Hospitalization)
  Sender: FDA-Public Use
  Company Number: AUR-APL-2014-04203

PATIENT
  Age: 37 Year
  Sex: Female

DRUGS (1)
  1. AMOXICILLIN+CLAVULANIC ACID [Suspect]
     Indication: PERIODONTITIS

REACTIONS (4)
  - Lymphadenopathy [None]
  - Tachycardia [None]
  - Leukocytosis [None]
  - Acute generalised exanthematous pustulosis [None]
